FAERS Safety Report 24835276 (Version 3)
Quarter: 2025Q1

REPORT INFORMATION
  Report Type: Spontaneous
  Country: US (occurrence: US)
  Receive Date: 20250113
  Receipt Date: 20250319
  Transmission Date: 20250409
  Serious: Yes (Hospitalization)
  Sender: BRISTOL-MYERS SQUIBB COMPANY
  Company Number: US-BRISTOL-MYERS SQUIBB COMPANY-2025-002039

PATIENT
  Age: 75 Year
  Sex: Male

DRUGS (2)
  1. POMALYST [Suspect]
     Active Substance: POMALIDOMIDE
     Indication: Plasma cell myeloma
     Dosage: TAKE 1 CAPSULE BY MOUTH EVERY DAY ON AN EMPTY STOMACH ON DAYS 1-21 OF 28-DAY CYCLE. DO NOT BREAK, CH
     Route: 048
  2. POMALYST [Suspect]
     Active Substance: POMALIDOMIDE
     Dosage: TAKE 1 CAPSULE BY MOUTH ON AN EMPTY STOMACH DAILY ON DAYS 1-21 OF A 28 DAY CYCLE. DO NOT BREAK, CHEW
     Route: 048

REACTIONS (1)
  - Laboratory test abnormal [Unknown]
